FAERS Safety Report 9393045 (Version 1)
Quarter: 2013Q3

REPORT INFORMATION
  Report Type: Spontaneous
  Country: IT (occurrence: IT)
  Receive Date: 20130710
  Receipt Date: 20130710
  Transmission Date: 20140515
  Serious: Yes (Other)
  Sender: FDA-Public Use
  Company Number: IT-PFIZER INC-2013202983

PATIENT
  Age: 36 Year
  Sex: Male

DRUGS (1)
  1. XANAX [Suspect]
     Dosage: 5 MG, 1X/DAY
     Route: 048
     Dates: start: 20130530, end: 20130531

REACTIONS (1)
  - Drug abuse [Recovering/Resolving]
